FAERS Safety Report 9723344 (Version 1)
Quarter: 2013Q4

REPORT INFORMATION
  Report Type: Spontaneous
  Country: US (occurrence: US)
  Receive Date: 20131202
  Receipt Date: 20131202
  Transmission Date: 20140711
  Serious: No
  Sender: FDA-Public Use
  Company Number: US-GLAXOSMITHKLINE-A1015157A

PATIENT
  Age: 52 Year
  Sex: Female

DRUGS (2)
  1. FLONASE [Suspect]
     Indication: PRODUCT USED FOR UNKNOWN INDICATION
     Dosage: 50MCG UNKNOWN
     Route: 045
     Dates: start: 20110427
  2. REQUIP [Suspect]
     Indication: PRODUCT USED FOR UNKNOWN INDICATION
     Dosage: 4MG UNKNOWN
     Route: 048
     Dates: start: 20110427

REACTIONS (3)
  - Malaise [Unknown]
  - Influenza [Unknown]
  - Stress [Unknown]
